FAERS Safety Report 7737582-8 (Version None)
Quarter: 2011Q3

REPORT INFORMATION
  Report Type: 
  Country: None (occurrence: None)
  Receive Date: 20110908
  Receipt Date: 20110831
  Transmission Date: 20111222
  Serious: Yes (Hospitalization)
  Sender: FDA-Public Use
  Company Number: US-MERCK-1106USA03113

PATIENT
  Age: 75 Year
  Sex: Female

DRUGS (2)
  1. FOSAMAX PLUS D [Suspect]
     Indication: OSTEOPOROSIS
     Route: 048
     Dates: start: 20070301, end: 20070601
  2. FOSAMAX [Suspect]
     Indication: OSTEOPOROSIS
     Route: 048
     Dates: start: 20020501, end: 20070201

REACTIONS (7)
  - EYELID DISORDER [None]
  - FEMUR FRACTURE [None]
  - CATARACT [None]
  - PELVIC FRACTURE [None]
  - ADVERSE EVENT [None]
  - HYPERTENSION [None]
  - BREAST DISORDER [None]
